FAERS Safety Report 18430604 (Version 1)
Quarter: 2020Q4

REPORT INFORMATION
  Report Type: Spontaneous
  Country: GB (occurrence: GB)
  Receive Date: 20201027
  Receipt Date: 20201027
  Transmission Date: 20210114
  Serious: Yes (Other)
  Sender: FDA-Public Use
  Company Number: GB-ACCORD-206417

PATIENT
  Age: 53 Year
  Sex: Male
  Weight: 76.65 kg

DRUGS (2)
  1. NALTREXONE [Suspect]
     Active Substance: NALTREXONE
     Indication: ALCOHOL ABUSE
     Route: 048
     Dates: start: 20201003, end: 20201004
  2. PERICIAZINE [Concomitant]
     Active Substance: PERICIAZINE

REACTIONS (8)
  - Abdominal pain upper [Recovering/Resolving]
  - Paraesthesia [Recovering/Resolving]
  - Insomnia [Unknown]
  - Dizziness [Recovering/Resolving]
  - Hyperhidrosis [Unknown]
  - Vomiting [Unknown]
  - Nasopharyngitis [Unknown]
  - Nausea [Not Recovered/Not Resolved]

NARRATIVE: CASE EVENT DATE: 20201003
